FAERS Safety Report 21642980 (Version 1)
Quarter: 2022Q4

REPORT INFORMATION
  Report Type: Report from Study
  Country: US (occurrence: None)
  Receive Date: 20221125
  Receipt Date: 20221125
  Transmission Date: 20230113
  Serious: Yes (Hospitalization, Other)
  Sender: FDA-Public Use
  Company Number: 2022A384683

PATIENT
  Sex: Female

DRUGS (1)
  1. CALQUENCE [Suspect]
     Active Substance: ACALABRUTINIB
     Route: 048

REACTIONS (6)
  - Syncope [Unknown]
  - Seizure [Unknown]
  - Confusional state [Unknown]
  - Road traffic accident [Unknown]
  - Myalgia [Unknown]
  - Muscle spasms [Unknown]
